FAERS Safety Report 24184738 (Version 2)
Quarter: 2024Q3

REPORT INFORMATION
  Report Type: Spontaneous
  Country: US (occurrence: US)
  Receive Date: 20240807
  Receipt Date: 20240822
  Transmission Date: 20241017
  Serious: Yes (Life-Threatening, Hospitalization)
  Sender: TEVA
  Company Number: US-TEVA-VS-3228026

PATIENT
  Age: 63 Year
  Sex: Male

DRUGS (4)
  1. IVERMECTIN [Suspect]
     Active Substance: IVERMECTIN
     Indication: Product used for unknown indication
     Route: 065
  2. THIAMINE [Concomitant]
     Active Substance: THIAMINE
     Indication: Alcohol withdrawal syndrome
     Route: 065
  3. DIETHYLTOLUAMIDE [Suspect]
     Active Substance: DIETHYLTOLUAMIDE
     Indication: Product used for unknown indication
     Route: 065
  4. FOLIC ACID [Concomitant]
     Active Substance: FOLIC ACID
     Indication: Alcohol withdrawal syndrome
     Route: 065

REACTIONS (5)
  - Encephalopathy [Unknown]
  - Hepatic failure [Unknown]
  - Accidental exposure to product [Unknown]
  - Renal failure [Unknown]
  - Toxicity to various agents [Unknown]
